FAERS Safety Report 6804396-2 (Version None)
Quarter: 2010Q2

REPORT INFORMATION
  Report Type: 
  Country: None (occurrence: None)
  Receive Date: 20100628
  Receipt Date: 20070314
  Transmission Date: 20101027
  Serious: No
  Sender: FDA-Public Use
  Company Number: US-PFIZER INC-2007021044

PATIENT
  Sex: Female
  Weight: 72.57 kg

DRUGS (3)
  1. CADUET [Suspect]
     Indication: BLOOD PRESSURE
     Dosage: 5MG/10MG; 5MG/10MG
     Dates: start: 20070313
  2. CADUET [Suspect]
     Indication: BLOOD CHOLESTEROL INCREASED
  3. DIURETICS [Concomitant]

REACTIONS (1)
  - HEADACHE [None]
